FAERS Safety Report 16552166 (Version 2)
Quarter: 2019Q3

REPORT INFORMATION
  Report Type: Spontaneous
  Country: US (occurrence: US)
  Receive Date: 20190710
  Receipt Date: 20190814
  Transmission Date: 20191004
  Serious: Yes (Other)
  Sender: FDA-Public Use
  Company Number: US-SAOL THERAPEUTICS-2019SAO00275

PATIENT
  Age: 20 Year
  Sex: Female

DRUGS (1)
  1. LIORESAL [Suspect]
     Active Substance: BACLOFEN
     Dosage: 449 ?G, \DAY
     Route: 037

REACTIONS (4)
  - Irritability [Recovered/Resolved]
  - Implant site erosion [Recovered/Resolved]
  - Complication associated with device [Recovered/Resolved]
  - Incision site impaired healing [Recovered/Resolved]

NARRATIVE: CASE EVENT DATE: 20190806
